FAERS Safety Report 4600115-9 (Version None)
Quarter: 2005Q1

REPORT INFORMATION
  Report Type: 
  Country: None (occurrence: None)
  Receive Date: 20050303
  Receipt Date: 20050221
  Transmission Date: 20050727
  Serious: Yes (Hospitalization)
  Sender: FDA-Public Use
  Company Number: 2005CG00034

PATIENT
  Age: 87 Year
  Sex: Male
  Weight: 70 kg

DRUGS (11)
  1. OMEPRAZOLE [Suspect]
     Dosage: 20 MG DAILY PO
     Route: 048
     Dates: end: 20041203
  2. CALCIPARINE [Suspect]
     Indication: THROMBOPHLEBITIS
     Dosage: 7500 IU TID SQ
     Route: 058
     Dates: start: 20041008, end: 20041203
  3. BRICANYL [Concomitant]
  4. CORTANCYL [Concomitant]
  5. CHLORAMINOPHENE [Concomitant]
  6. DAFALGAN [Concomitant]
  7. XATRAL [Concomitant]
  8. LASILIX [Concomitant]
  9. FORLAX [Concomitant]
  10. IMOVANE [Concomitant]
  11. KAYEXALATE [Concomitant]

REACTIONS (9)
  - CHRONIC LYMPHOCYTIC LEUKAEMIA [None]
  - CONDITION AGGRAVATED [None]
  - HAEMORRHAGIC DISORDER [None]
  - LIVER DISORDER [None]
  - PROSTATE CANCER [None]
  - PROTEINURIA [None]
  - RENAL CYST [None]
  - RENAL FAILURE ACUTE [None]
  - THROMBOPHLEBITIS [None]
